FAERS Safety Report 17705036 (Version 3)
Quarter: 2020Q2

REPORT INFORMATION
  Report Type: Spontaneous
  Country: CN (occurrence: CN)
  Receive Date: 20200424
  Receipt Date: 20200526
  Transmission Date: 20200714
  Serious: Yes (Other)
  Sender: FDA-Public Use
  Company Number: CN-ROCHE-2587335

PATIENT
  Age: 69 Year
  Sex: Male

DRUGS (11)
  1. AVASTIN [Suspect]
     Active Substance: BEVACIZUMAB
     Indication: LUNG NEOPLASM MALIGNANT
  2. XELODA [Suspect]
     Active Substance: CAPECITABINE
     Indication: LUNG NEOPLASM MALIGNANT
  3. IRINOTECAN [Concomitant]
     Active Substance: IRINOTECAN
  4. XELODA [Suspect]
     Active Substance: CAPECITABINE
     Indication: COLON CANCER STAGE IV
     Dosage: XELOX REGIMEN, 4 CYCLES
     Route: 065
     Dates: start: 20170602
  5. XELODA [Suspect]
     Active Substance: CAPECITABINE
     Indication: BRAIN NEOPLASM MALIGNANT
  6. OXALIPLATIN. [Concomitant]
     Active Substance: OXALIPLATIN
     Indication: BRAIN NEOPLASM MALIGNANT
  7. CETUXIMAB. [Concomitant]
     Active Substance: CETUXIMAB
  8. AVASTIN [Suspect]
     Active Substance: BEVACIZUMAB
     Indication: COLON CANCER STAGE IV
     Dosage: 4 CYCLES
     Route: 065
     Dates: start: 20170602
  9. AVASTIN [Suspect]
     Active Substance: BEVACIZUMAB
     Indication: BRAIN NEOPLASM MALIGNANT
  10. OXALIPLATIN. [Concomitant]
     Active Substance: OXALIPLATIN
     Indication: COLON CANCER STAGE IV
     Dosage: XELOX REGIMEN, 4 CYCLES
     Route: 065
     Dates: start: 20170602
  11. OXALIPLATIN. [Concomitant]
     Active Substance: OXALIPLATIN
     Indication: LUNG NEOPLASM MALIGNANT

REACTIONS (5)
  - Large intestine perforation [Unknown]
  - Oesophageal ulcer [Unknown]
  - Bone marrow failure [Unknown]
  - Gastrointestinal disorder [Unknown]
  - Rash [Unknown]
